FAERS Safety Report 23357778 (Version 1)
Quarter: 2024Q1

REPORT INFORMATION
  Report Type: Spontaneous
  Country: US (occurrence: US)
  Receive Date: 20240102
  Receipt Date: 20240102
  Transmission Date: 20240409
  Serious: No
  Sender: FDA-Public Use
  Company Number: US-ALKERMES INC.-ALK-2023-004736

PATIENT
  Sex: Female

DRUGS (1)
  1. VIVITROL [Suspect]
     Active Substance: NALTREXONE
     Indication: Substance use
     Dosage: 380 MILLIGRAM, Q28D
     Route: 030
     Dates: start: 202308

REACTIONS (1)
  - Off label use [Not Recovered/Not Resolved]
